FAERS Safety Report 5674746-1 (Version None)
Quarter: 2008Q1

REPORT INFORMATION
  Report Type: 
  Country: None (occurrence: None)
  Receive Date: 20080320
  Receipt Date: 20080314
  Transmission Date: 20080703
  Serious: Yes (Death)
  Sender: FDA-Public Use
  Company Number: NL-ROCHE-553429

PATIENT
  Age: 53 Year
  Sex: Female

DRUGS (3)
  1. CAPECITABINE [Suspect]
     Indication: BREAST CANCER METASTATIC
     Dosage: DOSE PER CLINICAL PROTOCOL: 825 MG/M2 ORALLY TWICE DAILY ON DAYS 1-14 PER 21 DAY CYCLE. REPORTED DO+
     Route: 048
     Dates: start: 20071130, end: 20080305
  2. BEVACIZUMAB [Suspect]
     Indication: BREAST CANCER METASTATIC
     Dosage: DOSE PER CLINICAL PROTOCOL. REPORTED DOSE: 700 MG DAILY
     Route: 042
     Dates: start: 20071130, end: 20080221
  3. PACLITAXEL [Suspect]
     Indication: BREAST CANCER METASTATIC
     Dosage: DOSE PER CLINICAL PROTOCOL: 90 MG/M2 I.V. ON DAYS 1 AND DAY 8 PER 21 DAY CYCLE. REPORTED DOSE: 130 +
     Route: 042
     Dates: start: 20071130, end: 20080228

REACTIONS (1)
  - GASTROINTESTINAL HAEMORRHAGE [None]
